FAERS Safety Report 11820553 (Version 1)
Quarter: 2015Q4

REPORT INFORMATION
  Report Type: Spontaneous
  Country: US (occurrence: US)
  Receive Date: 20151210
  Receipt Date: 20151210
  Transmission Date: 20160305
  Serious: No
  Sender: FDA-Public Use
  Company Number: US-JNJFOC-20150515526

PATIENT
  Sex: Female

DRUGS (16)
  1. DEXILANT [Concomitant]
     Active Substance: DEXLANSOPRAZOLE
  2. NITROSTAT [Concomitant]
     Active Substance: NITROGLYCERIN
  3. SUCRALFATE. [Concomitant]
     Active Substance: SUCRALFATE
  4. XOPENEX [Concomitant]
     Active Substance: LEVALBUTEROL HYDROCHLORIDE
  5. COUMADIN [Concomitant]
     Active Substance: WARFARIN SODIUM
  6. VALSARTAN. [Concomitant]
     Active Substance: VALSARTAN
  7. SIMVASTATIN. [Concomitant]
     Active Substance: SIMVASTATIN
  8. VITAMIN C [Concomitant]
     Active Substance: ASCORBIC ACID
  9. VITAMIN B12 [Concomitant]
     Active Substance: CYANOCOBALAMIN
  10. IMBRUVICA [Suspect]
     Active Substance: IBRUTINIB
     Indication: B-CELL LYMPHOMA
     Route: 048
     Dates: start: 20150422
  11. ALVESCO [Concomitant]
     Active Substance: CICLESONIDE
  12. PROZAC [Concomitant]
     Active Substance: FLUOXETINE HYDROCHLORIDE
  13. ZANTAC [Concomitant]
     Active Substance: RANITIDINE HYDROCHLORIDE
  14. FLORASTOR [Concomitant]
     Active Substance: SACCHAROMYCES CEREVISIAE
  15. FOLIC ACID. [Concomitant]
     Active Substance: FOLIC ACID
  16. TYLENOL [Concomitant]
     Active Substance: ACETAMINOPHEN

REACTIONS (3)
  - Off label use [Unknown]
  - Headache [Unknown]
  - Myalgia [Unknown]

NARRATIVE: CASE EVENT DATE: 2015
